FAERS Safety Report 4521587-4 (Version None)
Quarter: 2004Q4

REPORT INFORMATION
  Report Type: 
  Country: None (occurrence: None)
  Receive Date: 20041206
  Receipt Date: 20041201
  Transmission Date: 20050328
  Serious: Yes (Other)
  Sender: FDA-Public Use
  Company Number: KII-2000-0012700

PATIENT
  Sex: Female

DRUGS (1)
  1. MORPHINE SULFATE [Suspect]

REACTIONS (3)
  - ACCIDENTAL EXPOSURE [None]
  - ANAPHYLACTIC SHOCK [None]
  - MEDICATION ERROR [None]
